FAERS Safety Report 17269710 (Version 1)
Quarter: 2020Q1

REPORT INFORMATION
  Report Type: Spontaneous
  Country: DE (occurrence: DE)
  Receive Date: 20200114
  Receipt Date: 20200114
  Transmission Date: 20200409
  Serious: Yes (Other)
  Sender: FDA-Public Use
  Company Number: DE-ASTRAZENECA-2020SE03631

PATIENT
  Sex: Female
  Weight: 38 kg

DRUGS (2)
  1. FASENRA [Suspect]
     Active Substance: BENRALIZUMAB
     Indication: ASTHMA
     Route: 058
     Dates: start: 201908
  2. CORTISONE [Concomitant]
     Active Substance: CORTISONE

REACTIONS (6)
  - Pseudomonas infection [Unknown]
  - Weight decreased [Unknown]
  - Off label use [Recovered/Resolved]
  - Vomiting [Unknown]
  - Pyrexia [Unknown]
  - Nausea [Unknown]
